FAERS Safety Report 8552990-3 (Version None)
Quarter: 2012Q3

REPORT INFORMATION
  Report Type: 
  Country: None (occurrence: None)
  Receive Date: 20120731
  Receipt Date: 20120726
  Transmission Date: 20120928
  Serious: Yes (Death, Other)
  Sender: FDA-Public Use
  Company Number: CN-PFIZER INC-2012182182

PATIENT
  Age: 46 Year
  Sex: Female

DRUGS (1)
  1. SUTENT [Suspect]
     Indication: GASTROINTESTINAL STROMAL TUMOUR
     Dosage: UNK

REACTIONS (4)
  - AZOTAEMIA [None]
  - MULTI-ORGAN FAILURE [None]
  - GASTROINTESTINAL STROMAL TUMOUR [None]
  - DISEASE PROGRESSION [None]
